FAERS Safety Report 9387536 (Version 2)
Quarter: 2014Q3

REPORT INFORMATION
  Report Type: Spontaneous
  Country: DK (occurrence: DK)
  Receive Date: 20130708
  Receipt Date: 20140715
  Transmission Date: 20150326
  Serious: Yes (Hospitalization)
  Sender: FDA-Public Use
  Company Number: DK-PFIZER INC-2013198900

PATIENT
  Age: 27 Year
  Sex: Female
  Weight: 60 kg

DRUGS (1)
  1. MISOPROSTOL. [Suspect]
     Active Substance: MISOPROSTOL
     Indication: LABOUR INDUCTION
     Dosage: 50 UG, SINGLE
     Route: 067
     Dates: start: 20030820, end: 20030820

REACTIONS (6)
  - Precipitate labour [Recovered/Resolved]
  - Off label use [Unknown]
  - Anal injury [Recovered/Resolved with Sequelae]
  - Decubitus ulcer [Recovered/Resolved]
  - Pain [Recovered/Resolved]
  - Meconium in amniotic fluid [Recovered/Resolved]

NARRATIVE: CASE EVENT DATE: 20030820
